FAERS Safety Report 8797622 (Version 1)
Quarter: 2012Q4

REPORT INFORMATION
  Report Type: 
  Country: AT (occurrence: AT)
  Receive Date: 20120920
  Receipt Date: 20120920
  Transmission Date: 20130627
  Serious: Yes (Other)
  Sender: FDA-Public Use
  Company Number: AT-JNJFOC-20120905013

PATIENT
  Sex: Male
  Weight: 108 kg

DRUGS (2)
  1. STELARA [Suspect]
     Indication: PSORIASIS
     Dosage: since 2 years
     Route: 058
  2. STELARA [Suspect]
     Indication: PSORIASIS
     Route: 058

REACTIONS (2)
  - Weight increased [Unknown]
  - Psoriasis [Unknown]
